FAERS Safety Report 10404832 (Version 1)
Quarter: 2014Q3

REPORT INFORMATION
  Report Type: Not Available
  Country: US (occurrence: US)
  Receive Date: 20140825
  Receipt Date: 20140825
  Transmission Date: 20150326
  Serious: No
  Sender: FDA-Public Use
  Company Number: US-LUPIN PHARMACEUTICALS INC.-2014-01307

PATIENT
  Sex: Female

DRUGS (1)
  1. LOVASTATIN TABLETS USP 40 MG [Suspect]
     Active Substance: LOVASTATIN
     Indication: PRODUCT USED FOR UNKNOWN INDICATION
     Route: 065
     Dates: start: 20140630

REACTIONS (2)
  - Panic attack [Unknown]
  - Headache [Unknown]

NARRATIVE: CASE EVENT DATE: 2014
